FAERS Safety Report 9481576 (Version 1)
Quarter: 2013Q3

REPORT INFORMATION
  Report Type: Spontaneous
  Country: US (occurrence: US)
  Receive Date: 20130828
  Receipt Date: 20130828
  Transmission Date: 20140515
  Serious: Yes (Hospitalization)
  Sender: FDA-Public Use
  Company Number: US-AMGEN-KDL177198

PATIENT
  Age: 44 Year
  Sex: Female

DRUGS (2)
  1. ENBREL [Suspect]
     Indication: PSORIASIS
     Dosage: 50 MG, 2 TIMES/WK
     Route: 058
     Dates: start: 20041204
  2. METHOTREXATE [Concomitant]
     Dosage: 12.5 MG, QWK
     Route: 048
     Dates: start: 200603

REACTIONS (6)
  - Hypotension [Recovered/Resolved]
  - Asthenia [Recovered/Resolved]
  - Pericardial effusion [Recovered/Resolved]
  - Renal failure [Unknown]
  - Plasma cell myeloma [Unknown]
  - Device related infection [Unknown]
